FAERS Safety Report 5542587-1 (Version None)
Quarter: 2007Q4

REPORT INFORMATION
  Report Type: 
  Country: None (occurrence: None)
  Receive Date: 20071205
  Receipt Date: 20071205
  Transmission Date: 20080405
  Serious: Yes (Other)
  Sender: FDA-Public Use
  Company Number: None

PATIENT
  Sex: Male
  Weight: 149.687 kg

DRUGS (2)
  1. GADOLINIUM [Suspect]
     Indication: JOINT INJURY
     Dates: start: 20020505, end: 20020505
  2. GADOLINIUM [Suspect]
     Dates: start: 20020617, end: 20020617

REACTIONS (9)
  - ARTHRALGIA [None]
  - CARPAL TUNNEL SYNDROME [None]
  - FLANK PAIN [None]
  - FLUID RETENTION [None]
  - HYPOAESTHESIA [None]
  - ILL-DEFINED DISORDER [None]
  - JOINT STIFFNESS [None]
  - SWELLING [None]
  - TENOSYNOVITIS [None]
